FAERS Safety Report 9180025 (Version 1)
Quarter: 2013Q1

REPORT INFORMATION
  Report Type: Spontaneous
  Country: CA (occurrence: CA)
  Receive Date: 20130321
  Receipt Date: 20130321
  Transmission Date: 20140127
  Serious: Yes (Hospitalization)
  Sender: FDA-Public Use
  Company Number: CA-AMGEN-CANSP2013017668

PATIENT
  Age: 44 Year
  Sex: Male

DRUGS (17)
  1. NPLATE [Suspect]
     Indication: PRODUCT USED FOR UNKNOWN INDICATION
     Dosage: 140 MUG, UNK
  2. NPLATE [Suspect]
     Dosage: 210 MUG, UNK
  3. AMLODIPINE [Concomitant]
  4. CITALOPRAM [Concomitant]
  5. ESOMEPRAZOLE [Concomitant]
  6. FUROSEMIDE [Concomitant]
  7. HYDROMORPHONE [Concomitant]
  8. IMIPENEM CILASTATIN                /00820501/ [Concomitant]
  9. LITHIUM [Concomitant]
  10. MIRTAZAPINE [Concomitant]
  11. MYCAMINE [Concomitant]
  12. PREDNISONE [Concomitant]
  13. PROPRANOLOL [Concomitant]
  14. QUETIAPINE [Concomitant]
  15. RITUXAN [Concomitant]
  16. TACROLIMUS [Concomitant]
  17. VANCOMYCIN [Concomitant]

REACTIONS (1)
  - Portal vein thrombosis [Unknown]
